FAERS Safety Report 8262713-3 (Version None)
Quarter: 2012Q2

REPORT INFORMATION
  Report Type: 
  Country: None (occurrence: None)
  Receive Date: 20120405
  Receipt Date: 20120329
  Transmission Date: 20120825
  Serious: Yes (Other)
  Sender: FDA-Public Use
  Company Number: PHHY2011IE89497

PATIENT
  Sex: Female
  Weight: 73.5 kg

DRUGS (8)
  1. EXFORGE [Suspect]
     Indication: HYPERTENSION
     Dosage: 1 DF (160 MG VALS AND 10 MG AMLO), UNK
     Route: 048
     Dates: start: 20080618, end: 20110519
  2. LANSOPRAZOLE [Concomitant]
     Indication: PROPHYLAXIS
     Dosage: 30 MG, UNK
     Route: 048
     Dates: start: 20110126, end: 20111114
  3. BUMETANIDE [Concomitant]
     Dosage: 1 MG, DAILY
  4. NEBIVOLOL [Concomitant]
     Indication: HYPERTENSION
     Dosage: 5 UG, UNK
     Route: 048
     Dates: start: 20070131, end: 20111114
  5. CLOPIDOGREL [Concomitant]
     Dosage: UNK UKN, UNK
     Dates: start: 20110611
  6. IBANDRONATE SODIUM [Concomitant]
     Indication: OSTEOPOROSIS
     Dosage: 150 MG, QMO
     Route: 048
     Dates: start: 20070516, end: 20110915
  7. ATORVASTATIN [Concomitant]
     Indication: HYPERCHOLESTEROLAEMIA
     Dosage: 40 MG, UNK
     Route: 048
     Dates: start: 20100210, end: 20111114
  8. AMLODIPINE [Concomitant]
     Indication: HYPERTENSION
     Dosage: 10 MG, UNK
     Route: 048
     Dates: start: 20110519, end: 20111114

REACTIONS (1)
  - HYPONATRAEMIA [None]
